FAERS Safety Report 24781985 (Version 5)
Quarter: 2025Q1

REPORT INFORMATION
  Report Type: Spontaneous
  Country: GB (occurrence: GB)
  Receive Date: 20241227
  Receipt Date: 20250324
  Transmission Date: 20250409
  Serious: Yes (Other)
  Sender: MYLAN
  Company Number: GB-MYLANLABS-2024M1115994

PATIENT
  Sex: Male

DRUGS (2)
  1. CLOZARIL [Suspect]
     Active Substance: CLOZAPINE
     Indication: Schizophrenia
  2. FLUCLOXACILLIN [Concomitant]
     Active Substance: FLUCLOXACILLIN

REACTIONS (7)
  - Neutropenia [Recovered/Resolved]
  - Haemoglobin decreased [Not Recovered/Not Resolved]
  - Eosinophil count decreased [Not Recovered/Not Resolved]
  - White blood cell count decreased [Recovered/Resolved]
  - Neutrophil count increased [Unknown]
  - White blood cell count increased [Unknown]
  - Off label use [Unknown]

NARRATIVE: CASE EVENT DATE: 20241125
